FAERS Safety Report 4786182-0 (Version None)
Quarter: 2005Q3

REPORT INFORMATION
  Report Type: 
  Country: None (occurrence: None)
  Receive Date: 20050930
  Receipt Date: 20050930
  Transmission Date: 20060218
  Serious: Yes (Other)
  Sender: FDA-Public Use
  Company Number: None

PATIENT
  Age: 1 Year
  Sex: Female
  Weight: 8.5 kg

DRUGS (2)
  1. CIPROFLOXACIN [Suspect]
     Indication: CONJUNCTIVITIS BACTERIAL
     Dosage: 1 GT OU Q 2H WHILE AWAKE
     Dates: start: 20050915, end: 20050916
  2. CIPROFLOXACIN [Suspect]
     Indication: CONJUNCTIVITIS BACTERIAL
     Dosage: 1 GT OU Q 2H WHILE AWAKE
     Dates: start: 20050927, end: 20050928

REACTIONS (3)
  - CONDITION AGGRAVATED [None]
  - CONJUNCTIVITIS [None]
  - RASH [None]
